FAERS Safety Report 7753909-5 (Version None)
Quarter: 2011Q3

REPORT INFORMATION
  Report Type: 
  Country: None (occurrence: None)
  Receive Date: 20110915
  Receipt Date: 20110902
  Transmission Date: 20111222
  Serious: No
  Sender: FDA-Public Use
  Company Number: US-B.I. PHARMACEUTICALS,INC./RIDGEFIELD-2011-BP-21568BP

PATIENT
  Age: 79 Year
  Sex: Male

DRUGS (4)
  1. FLEXERIL [Concomitant]
  2. LEVOTHYROXINE SODIUM [Concomitant]
  3. PRADAXA [Suspect]
     Indication: ATRIAL FIBRILLATION
     Dosage: 300 MG
     Route: 048
     Dates: start: 20110601
  4. METOPROLOL TARTRATE [Concomitant]

REACTIONS (1)
  - MUSCLE SPASMS [None]
